FAERS Safety Report 6997475-0 (Version None)
Quarter: 2010Q3

REPORT INFORMATION
  Report Type: 
  Country: None (occurrence: None)
  Receive Date: 20100918
  Receipt Date: 20091019
  Transmission Date: 20110219
  Serious: No
  Sender: FDA-Public Use
  Company Number: US-WYE-H11740609

PATIENT
  Sex: Female
  Weight: 106.69 kg

DRUGS (3)
  1. PRISTIQ [Suspect]
     Indication: DEPRESSION
     Route: 048
     Dates: start: 20090914
  2. PRISTIQ [Suspect]
     Indication: ANXIETY
  3. ATENOLOL [Concomitant]

REACTIONS (2)
  - BURNING SENSATION [None]
  - HYPERHIDROSIS [None]
